FAERS Safety Report 7209616-0 (Version None)
Quarter: 2011Q1

REPORT INFORMATION
  Report Type: 
  Country: None (occurrence: None)
  Receive Date: 20110104
  Receipt Date: 20101224
  Transmission Date: 20110831
  Serious: Yes (Life-Threatening, Hospitalization)
  Sender: FDA-Public Use
  Company Number: JP-GENZYME-THYM-1002127

PATIENT

DRUGS (8)
  1. DIPHENHYDRAMINE HYDROCHLORIDE [Concomitant]
     Indication: PREMEDICATION
     Dosage: UNK
     Dates: start: 20091109, end: 20091113
  2. PREDNISOLONE [Concomitant]
     Indication: PREMEDICATION
     Dosage: UNK
     Dates: start: 20091115, end: 20091212
  3. THYMOGLOBULIN [Suspect]
     Indication: APLASTIC ANAEMIA
     Dosage: 250 MG, QD
     Route: 042
     Dates: start: 20091109, end: 20091113
  4. ACETAMINOPHEN [Concomitant]
     Indication: PREMEDICATION
     Dosage: UNK
     Dates: start: 20091109, end: 20091113
  5. CYCLOSPORINE [Concomitant]
     Indication: APLASTIC ANAEMIA
     Dosage: UNK
     Dates: start: 20091030, end: 20100110
  6. SULFAMETHOXAZOLE W [Concomitant]
     Indication: INFECTION PROPHYLAXIS
     Dosage: UNK
     Dates: start: 20091030, end: 20091121
  7. ITRACONAZOLE [Concomitant]
     Indication: INFECTION PROPHYLAXIS
     Dosage: UNK
     Dates: start: 20091030, end: 20100110
  8. METHYLPREDNISOLONE SODIUM SUCCINATE [Concomitant]
     Indication: PREMEDICATION
     Dosage: UNK
     Dates: start: 20091109, end: 20091114

REACTIONS (9)
  - PANCYTOPENIA [None]
  - BLOOD BILIRUBIN INCREASED [None]
  - BLOOD GLUCOSE INCREASED [None]
  - IRON OVERLOAD [None]
  - BLOOD CREATININE INCREASED [None]
  - DECREASED APPETITE [None]
  - FEBRILE NEUTROPENIA [None]
  - INFLUENZA LIKE ILLNESS [None]
  - CELLULITIS [None]
